FAERS Safety Report 9617419 (Version 1)
Quarter: 2013Q4

REPORT INFORMATION
  Report Type: Spontaneous
  Country: IN (occurrence: IN)
  Receive Date: 20131011
  Receipt Date: 20131011
  Transmission Date: 20140711
  Serious: Yes (Other)
  Sender: FDA-Public Use
  Company Number: PHHY2013IN111772

PATIENT
  Sex: Female

DRUGS (1)
  1. TEGRETOL [Suspect]
     Indication: PARTIAL SEIZURES
     Dosage: 600 MG, IN DIVIDED DOSES

REACTIONS (3)
  - Diabetes insipidus [Unknown]
  - Polydipsia [Unknown]
  - Polyuria [Unknown]
